FAERS Safety Report 7757928-4 (Version None)
Quarter: 2011Q3

REPORT INFORMATION
  Report Type: 
  Country: None (occurrence: None)
  Receive Date: 20110919
  Receipt Date: 20110912
  Transmission Date: 20111222
  Serious: Yes (Hospitalization)
  Sender: FDA-Public Use
  Company Number: FR-BRISTOL-MYERS SQUIBB COMPANY-16056913

PATIENT
  Age: 69 Year
  Sex: Female

DRUGS (10)
  1. METFORMIN HCL [Suspect]
     Route: 048
     Dates: start: 19980101, end: 20110805
  2. SIMVASTATIN [Suspect]
     Route: 048
     Dates: start: 20070101, end: 20110805
  3. REPAGLINIDE [Suspect]
     Dates: start: 19950101, end: 20110805
  4. STRESAM [Suspect]
     Route: 048
     Dates: start: 20080101, end: 20110805
  5. BROMAZEPAM [Concomitant]
  6. RAMIPRIL [Concomitant]
  7. DIOSMIN [Suspect]
     Route: 048
     Dates: start: 20090101, end: 20110805
  8. COUMADIN [Suspect]
     Route: 048
     Dates: start: 19920101, end: 20110805
  9. TERCIAN [Suspect]
     Dosage: 1 DF= 40MG/ML DROPS
     Route: 048
     Dates: start: 20080101, end: 20110805
  10. LANTUS [Concomitant]

REACTIONS (4)
  - THROMBOCYTOPENIA [None]
  - TRANSAMINASES INCREASED [None]
  - GAMMA-GLUTAMYLTRANSFERASE INCREASED [None]
  - BLOOD ALKALINE PHOSPHATASE INCREASED [None]
